FAERS Safety Report 13708917 (Version 3)
Quarter: 2017Q3

REPORT INFORMATION
  Report Type: Spontaneous
  Country: BR (occurrence: BR)
  Receive Date: 20170630
  Receipt Date: 20170726
  Transmission Date: 20171127
  Serious: Yes (Other)
  Sender: FDA-Public Use
  Company Number: BR-ABBVIE-17P-020-2025873-00

PATIENT
  Sex: Female
  Weight: 94 kg

DRUGS (2)
  1. SYNTHROID [Suspect]
     Active Substance: LEVOTHYROXINE SODIUM
     Indication: PRODUCT USED FOR UNKNOWN INDICATION
     Dosage: AT THE MORNING (IN FASTING)
     Route: 048
  2. LOSARTAN. [Concomitant]
     Active Substance: LOSARTAN
     Indication: HYPERTENSION
     Route: 048

REACTIONS (9)
  - Vasculitis [Recovering/Resolving]
  - Thyroid disorder [Not Recovered/Not Resolved]
  - Product quality issue [Unknown]
  - Drug ineffective [Unknown]
  - Drug dose omission [Unknown]
  - Skin ulcer [Recovered/Resolved]
  - Thyroid hormones decreased [Not Recovered/Not Resolved]
  - Vascular occlusion [Recovered/Resolved]
  - Thyroid size decreased [Unknown]

NARRATIVE: CASE EVENT DATE: 2015
